FAERS Safety Report 5124796-9 (Version None)
Quarter: 2006Q4

REPORT INFORMATION
  Report Type: 
  Country: None (occurrence: None)
  Receive Date: 20061011
  Receipt Date: 20060820
  Transmission Date: 20070319
  Serious: Yes (Life-Threatening, Hospitalization)
  Sender: FDA-Public Use
  Company Number: PHHO2006BR13700

PATIENT
  Age: 58 Year
  Sex: Male
  Weight: 56 kg

DRUGS (3)
  1. RAD001A [Suspect]
     Indication: HEART TRANSPLANT
     Dosage: 0.5 MG DAILY DOSE
     Route: 048
     Dates: start: 20060501, end: 20060803
  2. NEORAL [Suspect]
     Indication: HEART TRANSPLANT
     Dosage: 75 MG, BID
     Route: 048
     Dates: start: 20060628, end: 20060810
  3. TACROLIMUS [Suspect]
     Indication: HEART TRANSPLANT
     Dosage: 3 MG, BID
     Route: 048
     Dates: start: 20060810, end: 20060819

REACTIONS (6)
  - AMERICAN TRYPANOSOMIASIS [None]
  - ATRIOVENTRICULAR BLOCK SECOND DEGREE [None]
  - CONFUSIONAL STATE [None]
  - LEUKOPENIA [None]
  - MENTAL DISORDER [None]
  - MYOCARDITIS [None]
